FAERS Safety Report 23273553 (Version 3)
Quarter: 2024Q2

REPORT INFORMATION
  Report Type: Spontaneous
  Country: US (occurrence: US)
  Receive Date: 20231207
  Receipt Date: 20240507
  Transmission Date: 20240715
  Serious: No
  Sender: FDA-Public Use
  Company Number: US-PFIZER INC-202300423305

PATIENT
  Age: 18 Year
  Sex: Female

DRUGS (2)
  1. CIBINQO [Suspect]
     Active Substance: ABROCITINIB
     Indication: Dermatitis atopic
     Dosage: 100 MG
     Route: 048
     Dates: start: 20231106, end: 20231115
  2. RINVOQ [Concomitant]
     Active Substance: UPADACITINIB
     Dosage: UNK

REACTIONS (5)
  - Skin swelling [Recovered/Resolved]
  - Skin weeping [Recovered/Resolved]
  - Drug hypersensitivity [Recovered/Resolved]
  - Product prescribing error [Unknown]
  - Product use issue [Unknown]

NARRATIVE: CASE EVENT DATE: 20231101
